FAERS Safety Report 8520113-2 (Version None)
Quarter: 2012Q3

REPORT INFORMATION
  Report Type: 
  Country: None (occurrence: None)
  Receive Date: 20120719
  Receipt Date: 20120712
  Transmission Date: 20120928
  Serious: Yes (Other)
  Sender: FDA-Public Use
  Company Number: US-BAYER-2012-070610

PATIENT
  Age: 29 Year
  Sex: Female
  Weight: 107.94 kg

DRUGS (12)
  1. PHENERGAN HCL [Concomitant]
     Indication: NAUSEA
     Dosage: 25 MG, 1 Q6-8 H PRN (AS NEEDED)
     Dates: start: 20100406
  2. RETIN-A MICRO [Concomitant]
     Dosage: 0.04 %, UNK
     Dates: start: 20100406
  3. STEROID [Concomitant]
  4. IBUPROFEN [Concomitant]
     Indication: MIGRAINE
     Dosage: 600 MG, EVERY 8 HOURS PRN
     Dates: start: 20100406
  5. MEDROL [Concomitant]
     Indication: INFLAMMATION
     Dosage: 4 MG, UNK
     Dates: start: 20100607
  6. TORADOL [Concomitant]
     Indication: MIGRAINE
     Dosage: 60 MG, UNK
     Route: 030
     Dates: start: 20100408
  7. YAZ [Suspect]
  8. YASMIN [Suspect]
  9. ADVIL [Concomitant]
     Indication: CHEST PAIN
     Dosage: 200 MG, Q4HR
     Dates: start: 20100607
  10. CLARITIN [Concomitant]
     Dosage: 10 MG, QD
     Dates: start: 20100406
  11. VICODIN [Concomitant]
     Indication: PAIN
     Dosage: 500 MG-5 MG 1-2 Q (EVERY) 4-6H (HOUR)
     Dates: start: 20100406
  12. AZITHROMYCIN [Concomitant]
     Indication: PNEUMONIA
     Dosage: 250 MG, UNK
     Dates: start: 20100609

REACTIONS (1)
  - DEEP VEIN THROMBOSIS [None]
